FAERS Safety Report 6287943-1 (Version None)
Quarter: 2009Q3

REPORT INFORMATION
  Report Type: 
  Country: None (occurrence: None)
  Receive Date: 20090729
  Receipt Date: 20090723
  Transmission Date: 20100115
  Serious: Yes (Other)
  Sender: FDA-Public Use
  Company Number: US-BRISTOL-MYERS SQUIBB COMPANY-14714687

PATIENT
  Sex: Male

DRUGS (2)
  1. PRAVACHOL [Suspect]
     Dosage: STARTED 3 YRS AGO
  2. COUMADIN [Concomitant]

REACTIONS (1)
  - ATRIAL FIBRILLATION [None]
